FAERS Safety Report 10102413 (Version 2)
Quarter: 2014Q3

REPORT INFORMATION
  Report Type: Report from Study
  Country: GB (occurrence: GB)
  Receive Date: 20140424
  Receipt Date: 20140812
  Transmission Date: 20150326
  Serious: Yes (Life-Threatening, Hospitalization)
  Sender: FDA-Public Use
  Company Number: GB-TEVA-476097ISR

PATIENT
  Age: 76 Year
  Sex: Male
  Weight: 55.1 kg

DRUGS (18)
  1. LEVOTHYROXINE [Concomitant]
     Active Substance: LEVOTHYROXINE
  2. ISMN [Concomitant]
     Active Substance: ISOSORBIDE MONONITRATE
  3. ENALAPRIL [Suspect]
     Active Substance: ENALAPRIL
     Dosage: 20 MILLIGRAM DAILY; DOUBLE BLIND
     Route: 048
     Dates: end: 20130313
  4. GLICLAZIDE [Suspect]
     Active Substance: GLICLAZIDE
  5. LCZ696 [Suspect]
     Active Substance: INVESTIGATIONAL PRODUCT
     Indication: CARDIAC FAILURE CHRONIC
     Dosage: DOUBLE BLIND
     Route: 048
     Dates: start: 20120119, end: 20130117
  6. LCZ696 [Suspect]
     Active Substance: INVESTIGATIONAL PRODUCT
     Dosage: UNK
     Route: 048
     Dates: start: 20120113, end: 20120117
  7. DALTEPARIN [Concomitant]
     Active Substance: DALTEPARIN
     Dosage: 12.5000
  8. SPIRONOLACTONE. [Concomitant]
     Active Substance: SPIRONOLACTONE
  9. LCZ696 [Suspect]
     Active Substance: INVESTIGATIONAL PRODUCT
     Route: 048
     Dates: start: 20111207, end: 20120110
  10. BUMETANIDE. [Concomitant]
     Active Substance: BUMETANIDE
  11. RAMIPRIL. [Concomitant]
     Active Substance: RAMIPRIL
  12. LCZ696 [Suspect]
     Active Substance: INVESTIGATIONAL PRODUCT
     Indication: CARDIAC FAILURE CHRONIC
     Dosage: DOUBLE BLIND
     Route: 048
     Dates: end: 20130313
  13. WARFARIN [Suspect]
     Active Substance: WARFARIN
     Dosage: AS PRESCRIBED
  14. BISOPROLOL [Concomitant]
     Active Substance: BISOPROLOL
  15. FUROSEMIDE. [Concomitant]
     Active Substance: FUROSEMIDE
  16. IVABRADINE [Concomitant]
     Active Substance: IVABRADINE
     Indication: ANGINA PECTORIS
     Route: 048
     Dates: start: 20120606
  17. ENALAPRIL [Suspect]
     Active Substance: ENALAPRIL
     Indication: CARDIAC FAILURE CHRONIC
     Dosage: 20 MILLIGRAM DAILY; DOUBLE BLIND
     Route: 048
     Dates: start: 20120119, end: 20130117
  18. ATORVASTATIN [Concomitant]
     Active Substance: ATORVASTATIN
     Indication: MYOCARDIAL ISCHAEMIA

REACTIONS (6)
  - Hypoglycaemia [Recovered/Resolved]
  - Acute myocardial infarction [Recovered/Resolved]
  - Myocardial infarction [Recovered/Resolved]
  - Pulmonary embolism [Unknown]
  - Haemoglobin decreased [Recovered/Resolved]
  - Cardiac failure [Recovering/Resolving]

NARRATIVE: CASE EVENT DATE: 20120110
